FAERS Safety Report 4507241-3 (Version None)
Quarter: 2004Q4

REPORT INFORMATION
  Report Type: 
  Country: None (occurrence: None)
  Receive Date: 20041025
  Receipt Date: 20040528
  Transmission Date: 20050328
  Serious: Yes (Hospitalization)
  Sender: FDA-Public Use
  Company Number: US-JNJFOC-20040600150

PATIENT
  Age: 41 Year
  Sex: Female
  Weight: 80.2867 kg

DRUGS (4)
  1. INFLIXIMAB (INFLIXIMAB, RECOMBINANT) LYOPHILIZED POWDER [Suspect]
     Indication: CROHN'S DISEASE
     Dosage: 5 MG/KG, INTRAVNEOUS
     Route: 042
     Dates: start: 20020809
  2. INFLIXIMAB (INFLIXIMAB, RECOMBINANT) LYOPHILIZED POWDER [Suspect]
     Indication: CROHN'S DISEASE
     Dosage: 5 MG/KG, INTRAVNEOUS
     Route: 042
     Dates: start: 20020911
  3. 6-MERCAPTIOPURINE (MERCAPTOPURINE [Concomitant]
  4. BUDESONIDE (BUDESONIDE) [Concomitant]

REACTIONS (1)
  - ABDOMINAL PAIN [None]
